APPROVED DRUG PRODUCT: CLINDAMYCIN PHOSPHATE IN 5% DEXTROSE IN PLASTIC CONTAINER
Active Ingredient: CLINDAMYCIN PHOSPHATE
Strength: EQ 6MG BASE/ML
Dosage Form/Route: INJECTABLE;INJECTION
Application: A208084 | Product #001 | TE Code: AP
Applicant: BAXTER HEALTHCARE CORP
Approved: Jun 28, 2017 | RLD: No | RS: No | Type: RX